FAERS Safety Report 6789217-9 (Version None)
Quarter: 2010Q2

REPORT INFORMATION
  Report Type: 
  Country: None (occurrence: None)
  Receive Date: 20100623
  Receipt Date: 20090429
  Transmission Date: 20101027
  Serious: Yes (Other)
  Sender: FDA-Public Use
  Company Number: US-PFIZER INC-2008052228

PATIENT
  Sex: Female

DRUGS (9)
  1. PROVERA [Suspect]
     Indication: HORMONE REPLACEMENT THERAPY
     Dosage: 10 MG, UNK
     Route: 048
     Dates: start: 19960501, end: 19960507
  2. PROVERA [Suspect]
     Dosage: 5 MG, UNK
     Route: 048
     Dates: start: 19960508, end: 19960601
  3. PROVERA [Suspect]
     Dosage: 2.5 MG, UNK
     Dates: start: 19970430, end: 20000309
  4. MEDROXYPROGESTERONE ACETATE [Suspect]
     Indication: HORMONE REPLACEMENT THERAPY
     Route: 048
     Dates: start: 19950401, end: 19960601
  5. MEDROXYPROGESTERONE ACETATE [Suspect]
     Route: 048
     Dates: start: 19970401, end: 20000201
  6. PREMARIN [Suspect]
     Indication: HORMONE REPLACEMENT THERAPY
     Dosage: 0.625 MG, UNK
     Dates: start: 19970430, end: 20000309
  7. PREMARIN [Suspect]
     Dosage: 0.3 MG, UNK
     Dates: start: 19970430, end: 20000309
  8. PREMPHASE 14/14 [Suspect]
     Indication: HORMONE REPLACEMENT THERAPY
     Dosage: 0.625/2.5MG
     Dates: start: 19960601, end: 19970430
  9. SYNTHROID [Concomitant]
     Indication: HYPOTHYROIDISM
     Dosage: 50 MG, UNK
     Dates: start: 19990101

REACTIONS (1)
  - BREAST CANCER [None]
